APPROVED DRUG PRODUCT: LYRICA
Active Ingredient: PREGABALIN
Strength: 100MG
Dosage Form/Route: CAPSULE;ORAL
Application: N021446 | Product #004 | TE Code: AB
Applicant: UPJOHN US 2 LLC
Approved: Dec 30, 2004 | RLD: Yes | RS: No | Type: RX